FAERS Safety Report 8830008 (Version 1)
Quarter: 2012Q4

REPORT INFORMATION
  Report Type: 
  Country: BR (occurrence: BR)
  Receive Date: 20121008
  Receipt Date: 20121008
  Transmission Date: 20130627
  Serious: Yes (Other)
  Sender: FDA-Public Use
  Company Number: PHHY2012BR087797

PATIENT
  Sex: Female

DRUGS (1)
  1. RASILEZ AMLO [Suspect]
     Indication: HYPERTENSION
     Dosage: 1 DF (300 aliski and 10 mg amlo), per day
     Route: 048

REACTIONS (2)
  - Renal injury [Not Recovered/Not Resolved]
  - Blood pressure systolic increased [Recovered/Resolved]
